FAERS Safety Report 9513309 (Version 3)
Quarter: 2013Q4

REPORT INFORMATION
  Report Type: Report from Study
  Country: CO (occurrence: CO)
  Receive Date: 20130910
  Receipt Date: 20131015
  Transmission Date: 20140711
  Serious: Yes (Death, Hospitalization, Other)
  Sender: FDA-Public Use
  Company Number: CO-ROCHE-1271435

PATIENT
  Sex: Female
  Weight: 56 kg

DRUGS (5)
  1. LUCENTIS [Suspect]
     Indication: MACULAR DEGENERATION
     Route: 050
  2. LUCENTIS [Suspect]
     Route: 050
     Dates: start: 20130315
  3. LUCENTIS [Suspect]
     Dosage: TWO DOSE PER YEAR
     Route: 050
     Dates: start: 201304
  4. GLIBENCLAMID [Concomitant]
     Indication: DIABETES MELLITUS
     Route: 065
  5. METFORMIN [Concomitant]
     Indication: DIABETES MELLITUS
     Route: 065

REACTIONS (4)
  - Renal failure chronic [Fatal]
  - Cardiac disorder [Fatal]
  - Bacteraemia [Unknown]
  - Feeling abnormal [Unknown]
